FAERS Safety Report 20139070 (Version 1)
Quarter: 2021Q4

REPORT INFORMATION
  Report Type: Spontaneous
  Country: US (occurrence: None)
  Receive Date: 20211201
  Receipt Date: 20211201
  Transmission Date: 20220303
  Serious: No
  Sender: FDA-Public Use
  Company Number: None

PATIENT
  Age: 67 Year
  Sex: Female
  Weight: 48.99 kg

DRUGS (5)
  1. HUMIRA [Suspect]
     Active Substance: ADALIMUMAB
     Indication: Juvenile psoriatic arthritis
     Dosage: FREQUENCY : EVERY OTHER WEEK;?
     Route: 058
     Dates: start: 202112
  2. HUMIRA [Suspect]
     Active Substance: ADALIMUMAB
  3. TYMLOS [Suspect]
     Active Substance: ABALOPARATIDE
     Indication: Psoriatic arthropathy
     Dosage: FREQUENCY : DAILY;?
     Route: 058
     Dates: start: 202111
  4. TYMLOS [Suspect]
     Active Substance: ABALOPARATIDE
     Indication: Senile osteoporosis
  5. TYMLOS [Suspect]
     Active Substance: ABALOPARATIDE
     Indication: Psoriatic arthropathy

REACTIONS (2)
  - Bronchitis [None]
  - Sinus disorder [None]
